FAERS Safety Report 5530778-5 (Version None)
Quarter: 2007Q4

REPORT INFORMATION
  Report Type: 
  Country: None (occurrence: None)
  Receive Date: 20071130
  Receipt Date: 20071119
  Transmission Date: 20080405
  Serious: Yes (Other)
  Sender: FDA-Public Use
  Company Number: US-ELI_LILLY_AND_COMPANY-US200711004337

PATIENT
  Age: 41 Year
  Sex: Female

DRUGS (2)
  1. CYMBALTA [Suspect]
     Dosage: 20 MG, 2/D
     Route: 048
  2. CYMBALTA [Suspect]
     Dosage: 20 MG, 2/D
     Route: 048
     Dates: start: 20070101

REACTIONS (2)
  - COLON INJURY [None]
  - NAUSEA [None]
